FAERS Safety Report 6155416-2 (Version None)
Quarter: 2009Q2

REPORT INFORMATION
  Report Type: 
  Country: None (occurrence: None)
  Receive Date: 20090413
  Receipt Date: 20090305
  Transmission Date: 20091009
  Serious: Yes (Hospitalization)
  Sender: FDA-Public Use
  Company Number: PERC20090025

PATIENT
  Age: 70 Year
  Sex: Female

DRUGS (3)
  1. OPANA ER [Suspect]
     Indication: PAIN
     Dosage: 80 MG, BID PER ORAL
     Route: 048
     Dates: start: 20080101, end: 20090101
  2. OPANA [Suspect]
     Indication: BREAKTHROUGH PAIN
     Dosage: 5-15 MG Q5H, PER ORAL
     Route: 048
     Dates: start: 20080101, end: 20090101
  3. UNSPECIFIED MEDICATION [Concomitant]

REACTIONS (4)
  - ASTHENIA [None]
  - IMPAIRED GASTRIC EMPTYING [None]
  - SPEECH DISORDER [None]
  - THERAPEUTIC AGENT TOXICITY [None]
